FAERS Safety Report 17443755 (Version 1)
Quarter: 2020Q1

REPORT INFORMATION
  Report Type: Spontaneous
  Country: US (occurrence: US)
  Receive Date: 20200206
  Receipt Date: 20200206
  Transmission Date: 20200409
  Serious: No
  Sender: FDA-Public Use
  Company Number: None

PATIENT
  Age: 54 Year
  Sex: Female

DRUGS (4)
  1. HUMIRA [Suspect]
     Active Substance: ADALIMUMAB
     Indication: RHEUMATOID ARTHRITIS
     Route: 058
     Dates: start: 20170717
  2. METHOTREXATE TAB 2.5 MG [Concomitant]
  3. MELOXICAM TAB 15 MG [Concomitant]
  4. HYDROCOD/BU TAB 10-200MG [Concomitant]

REACTIONS (1)
  - Rheumatoid arthritis [None]
